FAERS Safety Report 8192604-8 (Version None)
Quarter: 2012Q1

REPORT INFORMATION
  Report Type: 
  Country: None (occurrence: None)
  Receive Date: 20120308
  Receipt Date: 20120305
  Transmission Date: 20120608
  Serious: Yes (Hospitalization)
  Sender: FDA-Public Use
  Company Number: US-BAYER-201029713NA

PATIENT
  Age: 36 Year
  Sex: Female
  Weight: 88.435 kg

DRUGS (9)
  1. YAZ [Suspect]
     Indication: CONTRACEPTION
     Dosage: UNK
     Dates: start: 20070910, end: 20090901
  2. DICHLORALPHENAZONE W/ISOMETHEPTENE/PARACETAM. [Concomitant]
     Dosage: UNK
     Dates: start: 20090716
  3. VERAPAMIL [Concomitant]
     Indication: BLOOD PRESSURE ABNORMAL
  4. SERTRALINE HYDROCHLORIDE [Concomitant]
     Indication: DEPRESSION
     Dosage: UNK UNK, QD
     Dates: start: 20070701
  5. ZOLOFT [Concomitant]
     Dosage: 100 MG, UNK
     Route: 048
  6. PROPRANOLOL [Concomitant]
     Indication: HEART RATE IRREGULAR
     Dosage: 30 MG, UNK
     Route: 048
     Dates: start: 20080901, end: 20091001
  7. NAPROXEN [Concomitant]
     Dosage: 500 MG, UNK
     Route: 048
     Dates: start: 20021101, end: 20090801
  8. VITAMIN D [Concomitant]
     Route: 048
  9. HYDROCODONE BITARTRATE AND ACETAMINOPHEN [Concomitant]
     Dosage: UNK
     Dates: start: 20090814

REACTIONS (2)
  - PLEURISY [None]
  - PULMONARY EMBOLISM [None]
